FAERS Safety Report 23450869 (Version 1)
Quarter: 2024Q1

REPORT INFORMATION
  Report Type: Spontaneous
  Country: US (occurrence: None)
  Receive Date: 20240126
  Receipt Date: 20240126
  Transmission Date: 20240410
  Serious: Yes (Disabling)
  Sender: FDA-Public Use
  Company Number: None

PATIENT
  Age: 56 Year
  Sex: Female
  Weight: 54 kg

DRUGS (4)
  1. CIPROFLOXACIN HYDROCHLORIDE [Suspect]
     Active Substance: CIPROFLOXACIN HYDROCHLORIDE
     Indication: Urinary tract infection
     Dosage: OTHER QUANTITY : 1 TABLET(S);?FREQUENCY : EVERY 12 HOURS;?
     Route: 048
     Dates: start: 20180817, end: 20180817
  2. MAGNESIUM [Concomitant]
     Active Substance: MAGNESIUM
  3. VITAMIN D NOS [Concomitant]
     Active Substance: VITAMIN D NOS
  4. vit B-12 [Concomitant]

REACTIONS (15)
  - Neuropathy peripheral [None]
  - Pain [None]
  - Fatigue [None]
  - Temperature regulation disorder [None]
  - Weight decreased [None]
  - Muscle atrophy [None]
  - Tinnitus [None]
  - Visual impairment [None]
  - Anxiety [None]
  - Insomnia [None]
  - Depression [None]
  - Suicidal ideation [None]
  - Mitral valve prolapse [None]
  - General physical health deterioration [None]
  - Quality of life decreased [None]

NARRATIVE: CASE EVENT DATE: 20180817
